FAERS Safety Report 8243456-9 (Version None)
Quarter: 2012Q1

REPORT INFORMATION
  Report Type: 
  Country: None (occurrence: None)
  Receive Date: 20120315
  Receipt Date: 20100401
  Transmission Date: 20120608
  Serious: No
  Sender: FDA-Public Use
  Company Number: PHEH2010US03254

PATIENT
  Age: 54 Year
  Sex: Male
  Weight: 77.1 kg

DRUGS (2)
  1. FANAPT [Suspect]
     Indication: SCHIZOPHRENIA
     Dosage: 1 MG, BID, ORAL
     Route: 048
     Dates: start: 20100312, end: 20100312
  2. ZYPREXA [Concomitant]

REACTIONS (2)
  - NAUSEA [None]
  - VOMITING [None]
